FAERS Safety Report 8168245-5 (Version None)
Quarter: 2012Q1

REPORT INFORMATION
  Report Type: 
  Country: None (occurrence: None)
  Receive Date: 20120227
  Receipt Date: 20120222
  Transmission Date: 20120608
  Serious: Yes (Other)
  Sender: FDA-Public Use
  Company Number: PHHO2010DE14694

PATIENT
  Sex: Male
  Weight: 80 kg

DRUGS (2)
  1. SIMULECT [Suspect]
     Indication: RENAL TRANSPLANT
     Dosage: 20 MG
     Route: 042
     Dates: start: 20100831, end: 20100923
  2. NO TREATMENT RECEIVED [Suspect]
     Indication: RENAL TRANSPLANT

REACTIONS (2)
  - WOUND DEHISCENCE [None]
  - RENAL GRAFT LOSS [None]
